FAERS Safety Report 24623679 (Version 1)
Quarter: 2024Q4

REPORT INFORMATION
  Report Type: Spontaneous
  Country: US (occurrence: US)
  Receive Date: 20241115
  Receipt Date: 20241115
  Transmission Date: 20250115
  Serious: Yes (Hospitalization, Other)
  Sender: PANACEA BIOTEC PHARMA LIMITED
  Company Number: US-PBT-009867

PATIENT
  Age: 31 Year
  Sex: Female

DRUGS (3)
  1. TACROLIMUS [Suspect]
     Active Substance: TACROLIMUS
     Indication: Graft versus host disease in lung
     Route: 065
     Dates: end: 20210303
  2. RITUXAN [Suspect]
     Active Substance: RITUXIMAB
     Indication: Graft versus host disease in lung
     Route: 065
     Dates: start: 202005, end: 20210303
  3. RITUXIMAB [Concomitant]
     Active Substance: RITUXIMAB
     Indication: Graft versus host disease in lung
     Route: 065

REACTIONS (5)
  - Septic shock [Unknown]
  - Cardiogenic shock [Unknown]
  - Purpura fulminans [Unknown]
  - Capnocytophaga infection [Unknown]
  - Product use in unapproved indication [Unknown]
